FAERS Safety Report 12638126 (Version 2)
Quarter: 2016Q4

REPORT INFORMATION
  Report Type: Spontaneous
  Country: US (occurrence: US)
  Receive Date: 20160809
  Receipt Date: 20161108
  Transmission Date: 20170207
  Serious: No
  Sender: FDA-Public Use
  Company Number: US-SA-2016SA120199

PATIENT
  Age: 72 Year
  Sex: Male
  Weight: 83.55 kg

DRUGS (10)
  1. OMEPRAZOLE. [Concomitant]
     Active Substance: OMEPRAZOLE
     Indication: DYSPEPSIA
     Route: 065
  2. ALIROCUMAB PREFILLED PEN [Concomitant]
     Active Substance: ALIROCUMAB
     Indication: HYPERCHOLESTEROLAEMIA
     Dates: start: 20160107, end: 20160621
  3. ALIROCUMAB PREFILLED PEN [Concomitant]
     Active Substance: ALIROCUMAB
     Indication: HYPERLIPIDAEMIA
     Dates: start: 20160107, end: 20160621
  4. ZETIA [Concomitant]
     Active Substance: EZETIMIBE
     Indication: LIPIDS
  5. COENZYME Q10 [Concomitant]
     Active Substance: UBIDECARENONE
     Route: 065
  6. LISINOPRIL. [Concomitant]
     Active Substance: LISINOPRIL
     Indication: BLOOD PRESSURE MEASUREMENT
     Route: 065
  7. PRALUENT [Suspect]
     Active Substance: ALIROCUMAB
     Indication: HYPERLIPIDAEMIA
     Route: 065
     Dates: start: 20160107, end: 20160621
  8. PRALUENT [Suspect]
     Active Substance: ALIROCUMAB
     Indication: HYPERCHOLESTEROLAEMIA
     Route: 065
     Dates: start: 20160107, end: 20160621
  9. VITAMIN D [Concomitant]
     Active Substance: CHOLECALCIFEROL
     Indication: VITAMIN D DECREASED
     Dosage: DOSE:2000 UNIT(S)
     Route: 065
  10. FISH OIL [Concomitant]
     Active Substance: FISH OIL
     Indication: LIPIDS
     Route: 065

REACTIONS (6)
  - Low density lipoprotein abnormal [Unknown]
  - Memory impairment [Unknown]
  - Dyspnoea [Unknown]
  - Chest discomfort [Unknown]
  - Muscle spasms [Unknown]
  - Chest pain [Unknown]

NARRATIVE: CASE EVENT DATE: 20160521
